FAERS Safety Report 10299361 (Version 2)
Quarter: 2014Q3

REPORT INFORMATION
  Report Type: Spontaneous
  Country: FR (occurrence: FR)
  Receive Date: 20140711
  Receipt Date: 20140711
  Transmission Date: 20150326
  Serious: Yes (Death, Hospitalization, Other)
  Sender: FDA-Public Use
  Company Number: FR-BRISTOL-MYERS SQUIBB COMPANY-20951026

PATIENT
  Age: 47 Year
  Sex: Female
  Weight: 48 kg

DRUGS (5)
  1. YERVOY [Suspect]
     Active Substance: IPILIMUMAB
     Indication: CHOROID MELANOMA
     Dosage: 1 DF=5MG/ML; RECEIVED UNTIL 10-APR-2014; FOURTH COURSE NOT ADMINISTERED
     Dates: start: 20140227, end: 20140410
  2. XANAX [Concomitant]
     Active Substance: ALPRAZOLAM
     Dosage: 1 TAB
  3. SKENAN [Concomitant]
     Active Substance: MORPHINE SULFATE
     Dosage: 1 DF=2 TAB;SKENAN 30 MG LP
  4. ACTISKENAN [Concomitant]
     Active Substance: MORPHINE SULFATE
  5. PROZAC [Concomitant]
     Active Substance: FLUOXETINE HYDROCHLORIDE
     Dosage: 1 DF=1 TAB

REACTIONS (3)
  - Large intestine perforation [Fatal]
  - Peritonitis [Fatal]
  - Colitis [Unknown]

NARRATIVE: CASE EVENT DATE: 20140403
